FAERS Safety Report 5340819-6 (Version None)
Quarter: 2007Q2

REPORT INFORMATION
  Report Type: 
  Country: None (occurrence: None)
  Receive Date: 20070405
  Receipt Date: 20061101
  Transmission Date: 20071010
  Serious: Yes (Other)
  Sender: FDA-Public Use
  Company Number: US200605004422

PATIENT
  Age: 39 Year
  Sex: Female
  Weight: 59.9 kg

DRUGS (7)
  1. CYMBALTA [Suspect]
     Indication: TRIGEMINAL NEURALGIA
     Dosage: 30 MG, EACH EVENING
     Dates: start: 20041229, end: 20041231
  2. BENADRYL PARKE DAVIS /ISR/ (DIPHENHYDRAMINE HYDROCHLORIDE) [Concomitant]
  3. LAMICTAL [Concomitant]
  4. NASONEX [Concomitant]
  5. ALUPENT [Concomitant]
  6. FLOVENT [Concomitant]
  7. AMBIEN [Concomitant]

REACTIONS (1)
  - URINARY RETENTION [None]
